FAERS Safety Report 13436653 (Version 1)
Quarter: 2017Q2

REPORT INFORMATION
  Report Type: Spontaneous
  Country: US (occurrence: US)
  Receive Date: 20170412
  Receipt Date: 20170412
  Transmission Date: 20170830
  Serious: No
  Sender: FDA-Public Use
  Company Number: None

PATIENT
  Age: 45 Year
  Sex: Female
  Weight: 56.75 kg

DRUGS (3)
  1. SYNTHROID [Concomitant]
     Active Substance: LEVOTHYROXINE SODIUM
  2. ROPIVACAINE HCL [Suspect]
     Active Substance: ROPIVACAINE HYDROCHLORIDE
     Indication: OSTEOTOMY
     Dosage: 8ML/INFUSION/HOUR NERVE BLOCK INFUSION
     Dates: start: 20170329, end: 20170330
  3. VITAMIN D [Concomitant]
     Active Substance: CHOLECALCIFEROL

REACTIONS (5)
  - Sinus tachycardia [None]
  - Furuncle [None]
  - Hyperhidrosis [None]
  - Muscle spasms [None]
  - Body temperature increased [None]

NARRATIVE: CASE EVENT DATE: 20170330
